FAERS Safety Report 6902216-9 (Version None)
Quarter: 2010Q3

REPORT INFORMATION
  Report Type: 
  Country: None (occurrence: None)
  Receive Date: 20100803
  Receipt Date: 20080428
  Transmission Date: 20110219
  Serious: No
  Sender: FDA-Public Use
  Company Number: US-PFIZER INC-2008037928

PATIENT
  Sex: Female
  Weight: 50.8 kg

DRUGS (8)
  1. LYRICA [Suspect]
     Indication: BACK PAIN
     Dates: start: 20080424, end: 20080428
  2. LYRICA [Suspect]
     Indication: NERVE COMPRESSION
  3. HYDROCHLOROTHIAZIDE [Concomitant]
  4. CALCIUM [Concomitant]
  5. MAGNESIUM [Concomitant]
  6. CHONDROITIN/GLUCOSAMINE [Concomitant]
  7. MULTI-VITAMINS [Concomitant]
  8. POTASSIUM [Concomitant]

REACTIONS (3)
  - HYPOKALAEMIA [None]
  - MUSCLE SPASMS [None]
  - MYALGIA [None]
